FAERS Safety Report 4602223-5 (Version None)
Quarter: 2005Q1

REPORT INFORMATION
  Report Type: 
  Country: None (occurrence: None)
  Receive Date: 20050201
  Receipt Date: 20040907
  Transmission Date: 20050727
  Serious: Yes (Other)
  Sender: FDA-Public Use
  Company Number: 200420501BWH

PATIENT
  Age: 41 Year
  Sex: Female

DRUGS (2)
  1. AVELOX [Suspect]
     Indication: UPPER RESPIRATORY TRACT INFECTION
     Dosage: 400 MG, QD, ORAL
     Route: 048
     Dates: start: 20031103, end: 20031112
  2. ROBITUSSIN [Concomitant]

REACTIONS (2)
  - AURA [None]
  - CONVULSION [None]
